FAERS Safety Report 11719648 (Version 6)
Quarter: 2016Q1

REPORT INFORMATION
  Report Type: Spontaneous
  Country: DE (occurrence: DE)
  Receive Date: 20151110
  Receipt Date: 20160301
  Transmission Date: 20160525
  Serious: Yes (Life-Threatening, Hospitalization, Other)
  Sender: FDA-Public Use
  Company Number: DE-SA-2015SA173201

PATIENT
  Age: 71 Year
  Sex: Female
  Weight: 56 kg

DRUGS (10)
  1. FERRO ^SANOL^ [Concomitant]
     Route: 048
  2. DEKRISTOL [Concomitant]
     Active Substance: CHOLECALCIFEROL
     Route: 048
  3. TREVILOR RETARD [Concomitant]
     Active Substance: VENLAFAXINE HYDROCHLORIDE
     Route: 048
  4. SPASMEX [Concomitant]
     Active Substance: TROSPIUM CHLORIDE
     Route: 048
  5. UNACID [Concomitant]
     Active Substance: AMPICILLIN SODIUM\SULBACTAM SODIUM
     Route: 042
     Dates: start: 20151021, end: 20151101
  6. FENTANYL. [Concomitant]
     Active Substance: FENTANYL
     Dosage: STRENGTH WAS 25 MCG / PATCH
     Route: 062
  7. CLEXANE [Suspect]
     Active Substance: ENOXAPARIN SODIUM
     Indication: THROMBOSIS PROPHYLAXIS
     Route: 058
     Dates: start: 20151021, end: 20151023
  8. MIRTAZAPINE. [Concomitant]
     Active Substance: MIRTAZAPINE
     Route: 048
  9. NOVALGIN [Concomitant]
     Active Substance: METAMIZOLE SODIUM
     Dosage: DOSE WAS 2
     Route: 042
  10. PANTOZOL [Concomitant]
     Active Substance: PANTOPRAZOLE SODIUM
     Route: 048

REACTIONS (2)
  - Pulmonary embolism [Unknown]
  - Myocardial infarction [Recovered/Resolved]

NARRATIVE: CASE EVENT DATE: 20151023
